FAERS Safety Report 5926644-3 (Version None)
Quarter: 2008Q4

REPORT INFORMATION
  Report Type: 
  Country: None (occurrence: None)
  Receive Date: 20081016
  Receipt Date: 20081003
  Transmission Date: 20090506
  Serious: Yes (Life-Threatening)
  Sender: FDA-Public Use
  Company Number: JPI-P-004063

PATIENT
  Age: 85 Year
  Sex: Female

DRUGS (2)
  1. LUVOX [Suspect]
     Indication: DRUG USE FOR UNKNOWN INDICATION
     Dosage: (25 MG, 1 D), ORAL
     Route: 048
  2. MULTIPLE UNSPECIFIED MEDICATIONS [Concomitant]

REACTIONS (3)
  - DEHYDRATION [None]
  - HYPONATRAEMIA [None]
  - INAPPROPRIATE ANTIDIURETIC HORMONE SECRETION [None]
